FAERS Safety Report 4580208-5 (Version None)
Quarter: 2005Q1

REPORT INFORMATION
  Report Type: 
  Country: None (occurrence: None)
  Receive Date: 20050211
  Receipt Date: 20050105
  Transmission Date: 20050727
  Serious: Yes (Life-Threatening, Hospitalization, Other)
  Sender: FDA-Public Use
  Company Number: 2232

PATIENT
  Age: 18 Year
  Sex: Female

DRUGS (1)
  1. ISONIAZID [Suspect]
     Indication: TUBERCULOSIS
     Dosage: 300MG DAILY ORAL
     Route: 048
     Dates: start: 20040201

REACTIONS (2)
  - CONVULSION [None]
  - INTENTIONAL MISUSE [None]
